FAERS Safety Report 5920602-0 (Version None)
Quarter: 2008Q4

REPORT INFORMATION
  Report Type: 
  Country: None (occurrence: None)
  Receive Date: 20081016
  Receipt Date: 20080820
  Transmission Date: 20090506
  Serious: No
  Sender: FDA-Public Use
  Company Number: US-BAYER-200831740NA

PATIENT
  Age: 27 Year
  Sex: Female

DRUGS (1)
  1. MIRENA [Suspect]
     Indication: CONTRACEPTION
     Route: 015
     Dates: start: 20080818, end: 20080820

REACTIONS (5)
  - DYSPNOEA [None]
  - FLUSHING [None]
  - MYALGIA [None]
  - PAIN [None]
  - RASH [None]
